FAERS Safety Report 19063378 (Version 1)
Quarter: 2021Q1

REPORT INFORMATION
  Report Type: Spontaneous
  Country: US (occurrence: US)
  Receive Date: 20210326
  Receipt Date: 20210326
  Transmission Date: 20210420
  Serious: No
  Sender: FDA-Public Use
  Company Number: US-ASTRAZENECA-2021A087511

PATIENT
  Age: 24103 Day
  Sex: Female
  Weight: 56.2 kg

DRUGS (4)
  1. SYNTHROID [Concomitant]
     Active Substance: LEVOTHYROXINE SODIUM
  2. CALQUENCE [Suspect]
     Active Substance: ACALABRUTINIB
     Indication: LEUKAEMIA
     Route: 048
     Dates: start: 20210212, end: 20210224
  3. FOSAMAX [Concomitant]
     Active Substance: ALENDRONATE SODIUM
  4. ELIQUIS [Concomitant]
     Active Substance: APIXABAN

REACTIONS (2)
  - Rash [Unknown]
  - Pruritus [Unknown]

NARRATIVE: CASE EVENT DATE: 20210224
